FAERS Safety Report 4850860-5 (Version None)
Quarter: 2005Q4

REPORT INFORMATION
  Report Type: 
  Country: None (occurrence: None)
  Receive Date: 20051208
  Receipt Date: 20051125
  Transmission Date: 20060501
  Serious: Yes (Disabling)
  Sender: FDA-Public Use
  Company Number: T05-GER-03487-01

PATIENT
  Sex: Female

DRUGS (1)
  1. ESCITALOPRAM OXALATE [Suspect]
     Indication: DEPRESSION

REACTIONS (5)
  - DRUG HYPERSENSITIVITY [None]
  - EXCORIATION [None]
  - PRURITUS [None]
  - RASH PAPULAR [None]
  - SKIN DISORDER [None]
